FAERS Safety Report 5520332-3 (Version None)
Quarter: 2007Q4

REPORT INFORMATION
  Report Type: 
  Country: None (occurrence: None)
  Receive Date: 20071116
  Receipt Date: 20071116
  Transmission Date: 20080405
  Serious: No
  Sender: FDA-Public Use
  Company Number: None

PATIENT
  Age: 78 Year
  Sex: Male
  Weight: 68.0396 kg

DRUGS (10)
  1. AVANDIA [Suspect]
     Indication: DIABETES MELLITUS
     Dosage: 4 MG ORAL 2X/DAY 5 OR 6 YRS
     Route: 048
     Dates: end: 20060711
  2. GLIPIZIDE [Concomitant]
  3. METFORMIN HCL [Concomitant]
  4. ZOCOR [Concomitant]
  5. ASPIRIN [Concomitant]
  6. METAMUCIL [Concomitant]
  7. IBUPROFEN [Concomitant]
  8. CARTIA XT [Concomitant]
  9. AVODART [Concomitant]
  10. MIACALCIN [Concomitant]

REACTIONS (2)
  - MACULAR OEDEMA [None]
  - RETINAL OEDEMA [None]
